FAERS Safety Report 17273986 (Version 1)
Quarter: 2020Q1

REPORT INFORMATION
  Report Type: Report from Study
  Country: JP (occurrence: JP)
  Receive Date: 20200115
  Receipt Date: 20200115
  Transmission Date: 20200409
  Serious: Yes (Death)
  Sender: FDA-Public Use
  Company Number: PHHO2006JP01635

PATIENT
  Age: 52 Year
  Sex: Male
  Weight: 67 kg

DRUGS (26)
  1. RENIVACE [Concomitant]
     Active Substance: ENALAPRIL
     Indication: HYPERURICAEMIA
     Route: 065
  2. LASIX [Concomitant]
     Active Substance: FUROSEMIDE
     Indication: OEDEMA
     Dosage: UNK
     Route: 065
     Dates: start: 20051119, end: 20051120
  3. SIGMART [Concomitant]
     Active Substance: NICORANDIL
     Indication: MYOCARDIAL ISCHAEMIA
     Route: 065
  4. MAGNESIUM OXIDE. [Concomitant]
     Active Substance: MAGNESIUM OXIDE
     Indication: CONSTIPATION
     Route: 065
     Dates: start: 20051126
  5. REMINARON [Concomitant]
     Active Substance: GABEXATE MESYLATE
     Indication: DISSEMINATED INTRAVASCULAR COAGULATION
     Route: 065
     Dates: start: 20051118, end: 20051124
  6. MEROPEN [Concomitant]
     Active Substance: MEROPENEM
     Indication: PROCTITIS
     Route: 065
     Dates: start: 20051122, end: 20051126
  7. METHYCOBAL [Concomitant]
     Active Substance: METHYLCOBALAMIN
     Indication: CIRCULATORY COLLAPSE
     Route: 065
  8. HUMULIN R [Concomitant]
     Active Substance: INSULIN HUMAN
     Indication: DIABETES MELLITUS
     Route: 065
     Dates: start: 20051114, end: 20051127
  9. ARTIST [Concomitant]
     Active Substance: CARVEDILOL
     Indication: MYOCARDIAL ISCHAEMIA
     Route: 065
  10. SELBEX [Concomitant]
     Active Substance: TEPRENONE
     Indication: GASTRITIS
     Route: 065
  11. MAXIPIME [Concomitant]
     Active Substance: CEFEPIME HYDROCHLORIDE
     Indication: FEBRILE NEUTROPENIA
     Route: 065
     Dates: start: 20051108, end: 20051114
  12. OMEPRAL [Concomitant]
     Active Substance: OMEPRAZOLE
     Indication: GASTRITIS
     Route: 065
     Dates: start: 20051122
  13. TASIGNA [Suspect]
     Active Substance: NILOTINIB
     Dosage: 200 MG, QD
     Route: 048
     Dates: start: 20051014, end: 20051107
  14. GLYCORAN [Concomitant]
     Active Substance: GLYCERIN
     Indication: DIABETES MELLITUS
     Route: 065
  15. MEYLON [Concomitant]
     Active Substance: SODIUM BICARBONATE
     Indication: ACIDOSIS
     Route: 065
     Dates: start: 20051112, end: 20051117
  16. DECADRON [Concomitant]
     Active Substance: DEXAMETHASONE
     Indication: INFLAMMATION
     Route: 065
     Dates: start: 20051114, end: 20051127
  17. PRIMPERAN [Concomitant]
     Active Substance: METOCLOPRAMIDE HYDROCHLORIDE
     Indication: ANTIEMETIC SUPPORTIVE CARE
     Route: 065
  18. ALOSITOL [Concomitant]
     Active Substance: ALLOPURINOL
     Indication: HYPERCHOLESTEROLAEMIA
     Route: 065
     Dates: start: 20051124
  19. BERIZYM [Concomitant]
     Active Substance: CELLULASE\DIASTASE\LIPASE
     Indication: GASTRITIS
     Route: 065
     Dates: start: 20051119
  20. DIFLUCAN [Concomitant]
     Active Substance: FLUCONAZOLE
     Indication: ANTIFUNGAL PROPHYLAXIS
     Route: 065
     Dates: start: 20051113
  21. CRAVIT [Concomitant]
     Active Substance: LEVOFLOXACIN
     Indication: PRODUCT USED FOR UNKNOWN INDICATION
     Route: 065
     Dates: start: 20051107, end: 20051113
  22. ZOFRAN [Concomitant]
     Active Substance: ONDANSETRON HYDROCHLORIDE
     Indication: NAUSEA
     Route: 065
     Dates: start: 20051114, end: 20051117
  23. PANTOL [Concomitant]
     Active Substance: DEXPANTHENOL
     Indication: ILEUS PARALYTIC
     Route: 065
     Dates: start: 20051122, end: 20051127
  24. TASIGNA [Suspect]
     Active Substance: NILOTINIB
     Indication: CHRONIC MYELOID LEUKAEMIA
     Dosage: 200 MG, QD
     Route: 048
     Dates: start: 20031014
  25. GASTER [Concomitant]
     Active Substance: FAMOTIDINE
     Indication: GASTRITIS
     Route: 065
  26. SOLDEM 3A [Concomitant]
     Active Substance: CARBOHYDRATES\POTASSIUM CHLORIDE\SODIUM CHLORIDE\SODIUM LACTATE
     Indication: FLUID REPLACEMENT
     Route: 065

REACTIONS (9)
  - Multiple organ dysfunction syndrome [Fatal]
  - Renal failure [Fatal]
  - Ileus paralytic [Fatal]
  - Body temperature increased [Fatal]
  - Disseminated intravascular coagulation [Fatal]
  - White blood cell count increased [Fatal]
  - Drug ineffective [Fatal]
  - Staphylococcal sepsis [Fatal]
  - Arthralgia [Fatal]

NARRATIVE: CASE EVENT DATE: 20051107
